FAERS Safety Report 6543271-8 (Version None)
Quarter: 2010Q1

REPORT INFORMATION
  Report Type: 
  Country: None (occurrence: None)
  Receive Date: 20100106
  Receipt Date: 20091218
  Transmission Date: 20100710
  Serious: No
  Sender: FDA-Public Use
  Company Number: 2009-00897

PATIENT
  Age: 58 Year
  Sex: Female
  Weight: 63.5036 kg

DRUGS (2)
  1. COLD REMEDY ORAL MIST [Suspect]
     Dosage: Q4HRS FOR 2 DAYS
     Dates: start: 20091216, end: 20091218
  2. HORMONE REPLACEMENT THERAPY [Concomitant]

REACTIONS (1)
  - AGEUSIA [None]
